FAERS Safety Report 21128532 (Version 2)
Quarter: 2022Q3

REPORT INFORMATION
  Report Type: Other
  Country: JP (occurrence: JP)
  Receive Date: 20220725
  Receipt Date: 20220802
  Transmission Date: 20221027
  Serious: No
  Sender: FDA-Public Use
  Company Number: JP-CHUGAI-2022014009

PATIENT
  Age: 76 Year
  Sex: Male
  Weight: 48.8 kg

DRUGS (13)
  1. ATEZOLIZUMAB [Suspect]
     Active Substance: ATEZOLIZUMAB
     Indication: Lung adenocarcinoma
     Route: 041
     Dates: start: 20210407, end: 20220330
  2. CARBOPLATIN [Suspect]
     Active Substance: CARBOPLATIN
     Indication: Lung adenocarcinoma
     Dosage: 320 MILLIGRAM
     Route: 041
     Dates: start: 20210407
  3. CARBOPLATIN [Suspect]
     Active Substance: CARBOPLATIN
     Dosage: 328 MILLIGRAM
     Route: 041
     Dates: start: 20210512
  4. CARBOPLATIN [Suspect]
     Active Substance: CARBOPLATIN
     Dosage: 290 MILLIGRAM, SINGLE
     Route: 041
     Dates: start: 20210630, end: 20210630
  5. PACLITAXEL [Suspect]
     Active Substance: PACLITAXEL
     Indication: Lung adenocarcinoma
     Dosage: 140 MILLIGRAM
     Route: 041
     Dates: start: 20210407
  6. PACLITAXEL [Suspect]
     Active Substance: PACLITAXEL
     Dosage: 144 MILLIGRAM
     Route: 041
     Dates: start: 20210512
  7. PACLITAXEL [Suspect]
     Active Substance: PACLITAXEL
     Dosage: 144 MILLIGRAM
     Route: 041
     Dates: start: 20210630, end: 20210714
  8. CARBOPLATIN [Concomitant]
     Active Substance: CARBOPLATIN
     Indication: Lung adenocarcinoma
     Route: 041
     Dates: start: 20210407
  9. CARBOPLATIN [Concomitant]
     Active Substance: CARBOPLATIN
     Dosage: 328 MILLIGRAM
     Route: 041
     Dates: start: 20210512
  10. CARBOPLATIN [Concomitant]
     Active Substance: CARBOPLATIN
     Route: 041
     Dates: start: 20210630
  11. PACLITAXEL [Concomitant]
     Active Substance: PACLITAXEL
     Indication: Lung adenocarcinoma
     Dosage: 140 MILLIGRAM
     Route: 041
     Dates: start: 20210407
  12. PACLITAXEL [Concomitant]
     Active Substance: PACLITAXEL
     Dosage: 144 MILLIGRAM
     Route: 041
     Dates: start: 20210512
  13. PACLITAXEL [Concomitant]
     Active Substance: PACLITAXEL
     Route: 041
     Dates: start: 20210630

REACTIONS (4)
  - Orthostatic hypotension [Not Recovered/Not Resolved]
  - Neutrophil count decreased [Recovered/Resolved]
  - Platelet count decreased [Recovered/Resolved]
  - Neuropathy peripheral [Recovered/Resolved]

NARRATIVE: CASE EVENT DATE: 20210421
